FAERS Safety Report 18468809 (Version 1)
Quarter: 2020Q4

REPORT INFORMATION
  Report Type: Spontaneous
  Country: US (occurrence: US)
  Receive Date: 20201105
  Receipt Date: 20201105
  Transmission Date: 20210114
  Serious: Yes (Hospitalization, Other)
  Sender: FDA-Public Use
  Company Number: US-SA-2020SA307813

PATIENT

DRUGS (12)
  1. FIRDAPSE [Suspect]
     Active Substance: AMIFAMPRIDINE PHOSPHATE
     Indication: MYASTHENIC SYNDROME
     Dosage: 20 MG, QID
     Route: 048
  2. TAMSULOSIN [TAMSULOSIN HYDROCHLORIDE] [Concomitant]
     Active Substance: TAMSULOSIN HYDROCHLORIDE
     Dosage: 40 MG, QD
  3. METFORMIN [Concomitant]
     Active Substance: METFORMIN HYDROCHLORIDE
     Dosage: 500 MG, BID
  4. LOSARTAN. [Concomitant]
     Active Substance: LOSARTAN
     Dosage: 50 MG, QD
  5. PLAVIX [Suspect]
     Active Substance: CLOPIDOGREL BISULFATE
     Dosage: UNK
     Dates: end: 202009
  6. ASPIRINE [Suspect]
     Active Substance: ASPIRIN
     Dosage: 81 MG, QD
  7. MYRBETRIQ [Concomitant]
     Active Substance: MIRABEGRON
     Dosage: 50 MG, QD
  8. DONEPEZIL. [Concomitant]
     Active Substance: DONEPEZIL
     Dosage: 5 MG, QD
  9. OXYBUTYNIN. [Concomitant]
     Active Substance: OXYBUTYNIN CHLORIDE
     Dosage: 5 MG, QD
  10. REPATHA [Concomitant]
     Active Substance: EVOLOCUMAB
     Dosage: UNK UNK, QOW
  11. ROSUVASTATIN. [Concomitant]
     Active Substance: ROSUVASTATIN
     Dosage: 20 MG, HS
  12. COLESEVELAM HYDROCHLORIDE. [Concomitant]
     Active Substance: COLESEVELAM HYDROCHLORIDE
     Dosage: 1350 MG, QD

REACTIONS (4)
  - Weight decreased [Recovered/Resolved]
  - Bile duct stone [Recovered/Resolved]
  - Dehydration [Recovered/Resolved]
  - Post procedural haemorrhage [Recovered/Resolved]

NARRATIVE: CASE EVENT DATE: 202009
